FAERS Safety Report 8044251 (Version 5)
Quarter: 2013Q2

REPORT INFORMATION
  Report Type: Spontaneous
  Country: US (occurrence: US)
  Receive Date: 20110719
  Receipt Date: 20130524
  Transmission Date: 20140414
  Serious: Yes (Life-Threatening, Congenital Anomaly, Other)
  Sender: FDA-Public Use
  Company Number: US-PFIZER INC-2011158495

PATIENT
  Sex: Female
  Weight: 4 kg

DRUGS (4)
  1. EFFEXOR [Suspect]
     Dosage: UNK
     Route: 064
     Dates: start: 200604
  2. VENLAFAXINE HCL [Suspect]
     Dosage: UNK
     Route: 064
  3. PRENATAL [Concomitant]
     Dosage: UNK,
     Route: 064
  4. FOLIC ACID [Concomitant]
     Dosage: UNK,
     Route: 064

REACTIONS (20)
  - Maternal exposure timing unspecified [Unknown]
  - Double outlet right ventricle [Unknown]
  - Pulmonary artery stenosis [Unknown]
  - Hypoplastic left heart syndrome [Unknown]
  - Heterotaxia [Unknown]
  - Aortic valve incompetence [Unknown]
  - Transposition of the great vessels [Unknown]
  - Takayasu^s arteritis [Unknown]
  - Patent ductus arteriosus [Unknown]
  - Mitral valve incompetence [Recovered/Resolved]
  - Tricuspid valve incompetence [Recovered/Resolved]
  - Ventricular septal defect [Unknown]
  - Patent ductus arteriosus [Unknown]
  - Cardiac aneurysm [Unknown]
  - Supraventricular tachycardia [Unknown]
  - Cardiomegaly [Unknown]
  - Vascular anomaly [Unknown]
  - Vascular anomaly [Unknown]
  - Atrial septal defect [Unknown]
  - Congenital anomaly [Unknown]
